FAERS Safety Report 17016654 (Version 1)
Quarter: 2019Q4

REPORT INFORMATION
  Report Type: Report from Study
  Country: DE (occurrence: DE)
  Receive Date: 20191111
  Receipt Date: 20191111
  Transmission Date: 20200122
  Serious: Yes (Other)
  Sender: FDA-Public Use
  Company Number: DE-PFIZER INC-2019479469

PATIENT
  Age: 62 Year
  Sex: Female

DRUGS (3)
  1. KISQALI [Suspect]
     Active Substance: RIBOCICLIB
     Indication: BREAST CANCER METASTATIC
     Dosage: 600 MG (INTAKE OF 21 DAYS, THAN 7 DAYS PAUSE)
     Route: 048
     Dates: start: 20180423, end: 20180626
  2. EXEMESTANE. [Suspect]
     Active Substance: EXEMESTANE
     Indication: BREAST CANCER METASTATIC
     Dosage: 25 MG, QD
     Route: 048
     Dates: start: 20181108
  3. LETROZOL 1 A PHARMA [Suspect]
     Active Substance: LETROZOLE
     Indication: BREAST CANCER METASTATIC
     Dosage: 2.5 MG, QD
     Route: 048
     Dates: start: 20180412, end: 20180726

REACTIONS (2)
  - Liver function test increased [Recovered/Resolved with Sequelae]
  - White blood cell count decreased [Unknown]

NARRATIVE: CASE EVENT DATE: 20180625
